FAERS Safety Report 8873618 (Version 2)
Quarter: 2013Q4

REPORT INFORMATION
  Report Type: Spontaneous
  Country: GB (occurrence: GB)
  Receive Date: 20121029
  Receipt Date: 20131011
  Transmission Date: 20140711
  Serious: Yes (Death, Congenital Anomaly, Other)
  Sender: FDA-Public Use
  Company Number: GB-TEVA-365016ISR

PATIENT
  Age: 22 Week
  Sex: 0

DRUGS (3)
  1. ZOLPIDEM [Suspect]
     Indication: INSOMNIA
     Route: 064
     Dates: end: 20120519
  2. TYSABRI [Suspect]
     Indication: MULTIPLE SCLEROSIS
     Route: 064
     Dates: start: 201003, end: 20120511
  3. VENLAFAXINE [Concomitant]

REACTIONS (5)
  - Congenital cystic kidney disease [Fatal]
  - Urinary tract obstruction [Not Recovered/Not Resolved]
  - Oligohydramnios [Unknown]
  - Ureteric dilatation [Not Recovered/Not Resolved]
  - Urethral valves [Not Recovered/Not Resolved]
